FAERS Safety Report 11394251 (Version 1)
Quarter: 2015Q3

REPORT INFORMATION
  Report Type: Spontaneous
  Country: US (occurrence: None)
  Receive Date: 20150817
  Receipt Date: 20150817
  Transmission Date: 20151125
  Serious: Yes (Life-Threatening, Hospitalization, Disabling, Other)
  Sender: FDA-Public Use
  Company Number: None

PATIENT
  Age: 57 Year
  Sex: Male
  Weight: 94.35 kg

DRUGS (7)
  1. B-100 [Concomitant]
  2. IBUPROFEN. [Concomitant]
     Active Substance: IBUPROFEN
  3. PLAVIX [Concomitant]
     Active Substance: CLOPIDOGREL BISULFATE
  4. HUMALOG [Concomitant]
     Active Substance: INSULIN LISPRO
  5. BENAZEPRIL [Suspect]
     Active Substance: BENAZEPRIL HYDROCHLORIDE
     Indication: ROUTINE HEALTH MAINTENANCE
     Route: 048
     Dates: start: 20131001, end: 20141207
  6. HYDROCHLOROTHHIAZIDE [Concomitant]
  7. LANTUS [Concomitant]
     Active Substance: INSULIN GLARGINE

REACTIONS (2)
  - Transient ischaemic attack [None]
  - Blood pressure increased [None]

NARRATIVE: CASE EVENT DATE: 20141207
